FAERS Safety Report 8398228-1 (Version None)
Quarter: 2012Q2

REPORT INFORMATION
  Report Type: 
  Country: None (occurrence: None)
  Receive Date: 20120531
  Receipt Date: 20120521
  Transmission Date: 20120825
  Serious: Yes (Death)
  Sender: FDA-Public Use
  Company Number: SE-NOVOPROD-352129

PATIENT
  Age: 53 Year
  Sex: Male

DRUGS (6)
  1. GLUCOPHAGE [Concomitant]
  2. VICTOZA [Suspect]
     Indication: PRODUCT USED FOR UNKNOWN INDICATION
     Dosage: 1.8 MG, QD
     Route: 065
  3. METOPROLOL TARTRATE [Concomitant]
  4. AMLODIPINE BESYLATE [Concomitant]
  5. FLUANXOL                           /00109702/ [Concomitant]
  6. ATACAND HCT [Concomitant]

REACTIONS (1)
  - DEATH [None]
